FAERS Safety Report 10005447 (Version 2)
Quarter: 2014Q1

REPORT INFORMATION
  Report Type: Report from Study
  Country: FR (occurrence: FR)
  Receive Date: 20140312
  Receipt Date: 20140312
  Transmission Date: 20141002
  Serious: Yes (Hospitalization)
  Sender: FDA-Public Use
  Company Number: PHHO2014FR002789

PATIENT
  Sex: 0

DRUGS (27)
  1. ZOLEDRONATE [Suspect]
     Indication: OSTEOSARCOMA
     Dosage: 3 MG, UNK
     Route: 042
     Dates: start: 20140201
  2. METHOTREXATE [Concomitant]
     Dosage: 20500 MG,(CUMALATIVE DOSE 51000 MG)
     Route: 042
     Dates: start: 20131030, end: 20140208
  3. XYLOCAINE VISCOUS [Concomitant]
     Dosage: 1 DOSE EVERY 8 HOURS (ORAL ROUTE/LOCAL APPLICATION )
     Route: 061
     Dates: start: 20140210
  4. FUNGIZONE [Concomitant]
     Dosage: 40 ML, (1 DOSE EVERY 8 HOURS)
     Route: 048
     Dates: start: 20140210
  5. CALCIUM + D3 [Concomitant]
     Dosage: 500 MG/400 IU (2 SACHETS)
     Route: 048
     Dates: start: 20140205
  6. MOVICOL [Concomitant]
     Dosage: 2 DF, PRN (2 SACHETS)
     Dates: start: 20140210
  7. AMOXICILLIN + CLAVULANIC ACID [Concomitant]
     Dosage: 1G/200 MG (1G EVERY 8 HOURS)
     Route: 065
     Dates: start: 20140210
  8. HYPERTONIC [Concomitant]
     Dosage: 4.5 MG, (1.5G IN THE MORNING, 3G IN THE AFTERNOON)
     Route: 065
     Dates: start: 20140210
  9. SPASFON [Concomitant]
     Dosage: 4 ML, PRN 2 AMPULES IN MORNING, AT LUNCH, IN EVENING AND AT NIGHT
     Route: 065
     Dates: start: 20140207
  10. CIFLOX [Concomitant]
     Dosage: 200 MG/100 ML, Q12H
     Route: 042
     Dates: start: 20140210
  11. ACICLOVIR [Concomitant]
     Dosage: 500 MG, Q8H
     Route: 042
     Dates: start: 20140210
  12. NIVESTIM [Concomitant]
     Dosage: 30 MU/0.5 ML
     Route: 042
     Dates: start: 20140210
  13. OXYNORM [Concomitant]
     Dosage: 20 MG/2 ML (80 MG OVER 24 HOURS)
     Route: 042
     Dates: start: 20140210
  14. PHOCYTAN [Concomitant]
     Dosage: 0.66 MMOL/ML, 10 ML (1 AMPULE OVER 24 HOURS)
     Dates: start: 20140214
  15. ISOTONIC [Concomitant]
     Dosage: 1500 ML, (500 ML IN THE MORNING, 1000 ML IN THE AFTERNOON)
     Route: 042
     Dates: start: 20140210
  16. PRIMPERAN [Concomitant]
     Dosage: 2 DF (AMPULES), 10 MG/2 ML EVERY 8 HOURS (IF NEEDED) PRN
     Route: 042
     Dates: start: 20140209
  17. PARACETAMOL [Concomitant]
     Dosage: 1G/100 ML (1000 MG IN MORNING, 1000 MG AT LUNCH, 1000 MG IN EVENING)
     Route: 042
     Dates: start: 20140207
  18. DEXERYL [Concomitant]
     Dosage: TUBE 250G (1 APPLICATION DAILY)
     Route: 061
     Dates: start: 20140212
  19. SODIUM BICARBONATE [Concomitant]
     Dosage: 1 APPLICATION AT 08:00 AM, 1 APPLICATION AT 12:00, 1 APPLICATION IN THE EVENING
     Route: 061
     Dates: start: 20140208
  20. ASPEGIC [Concomitant]
     Dosage: 300 MG, UNK
     Route: 042
     Dates: start: 20140218, end: 20140218
  21. FOLINATE DE CALCIUM AGUETTANT [Concomitant]
     Indication: PROPHYLAXIS
     Dosage: UNK
     Route: 042
     Dates: start: 20140130, end: 20140206
  22. RED BLOOD CELLS [Concomitant]
     Indication: APLASTIC ANAEMIA
     Dosage: UNK
     Route: 042
     Dates: start: 20140216, end: 20140216
  23. SOLUMEDROL [Concomitant]
     Dosage: 40 MG, UNK
     Route: 065
  24. ACUPAN [Concomitant]
     Dosage: 20 MG, (2 ML SOLUTION)
     Route: 065
     Dates: start: 20140210
  25. KETOPROFEN [Concomitant]
     Dosage: 100 MG 2ML
     Route: 042
     Dates: start: 20140211, end: 20140213
  26. KETOPROFEN [Concomitant]
     Dosage: 100 MG 2ML
     Route: 042
     Dates: start: 20140215, end: 20140218
  27. TOPALGIC [Concomitant]
     Dosage: 100 MG 2ML
     Route: 042
     Dates: start: 20140204, end: 20140206

REACTIONS (3)
  - Bone marrow failure [Recovered/Resolved]
  - Thrombocytopenia [Recovered/Resolved]
  - Ischaemic stroke [Recovered/Resolved]
